FAERS Safety Report 8133977-1 (Version None)
Quarter: 2012Q1

REPORT INFORMATION
  Report Type: 
  Country: None (occurrence: None)
  Receive Date: 20120213
  Receipt Date: 20120202
  Transmission Date: 20120608
  Serious: Yes (Hospitalization, Other)
  Sender: FDA-Public Use
  Company Number: US-ASTRAZENECA-2012SE00947

PATIENT
  Age: 60 Year
  Sex: Female

DRUGS (4)
  1. ASPIRIN [Concomitant]
  2. OMEPRAZOLE [Suspect]
     Dosage: GENERIC
     Route: 048
  3. CELEBREX [Concomitant]
  4. NEXIUM [Suspect]
     Route: 048

REACTIONS (9)
  - ASPIRATION [None]
  - DRUG DOSE OMISSION [None]
  - FALL [None]
  - INTERVERTEBRAL DISC PROTRUSION [None]
  - SLEEP DISORDER DUE TO A GENERAL MEDICAL CONDITION [None]
  - BIOPSY OESOPHAGUS ABNORMAL [None]
  - FOOT DEFORMITY [None]
  - GASTROOESOPHAGEAL REFLUX DISEASE [None]
  - DRUG INTOLERANCE [None]
